FAERS Safety Report 25249738 (Version 1)
Quarter: 2025Q2

REPORT INFORMATION
  Report Type: Spontaneous
  Country: US (occurrence: US)
  Receive Date: 20250429
  Receipt Date: 20250429
  Transmission Date: 20250716
  Serious: Yes (Hospitalization, Other)
  Sender: AUROBINDO
  Company Number: US-MYLANLABS-2019M1050319

PATIENT
  Age: 30 Year
  Sex: Female

DRUGS (17)
  1. DACTINOMYCIN [Suspect]
     Active Substance: DACTINOMYCIN
     Indication: Metastatic choriocarcinoma
     Route: 040
  2. DACTINOMYCIN [Suspect]
     Active Substance: DACTINOMYCIN
     Route: 065
  3. DACTINOMYCIN [Suspect]
     Active Substance: DACTINOMYCIN
     Route: 065
  4. CISPLATIN [Suspect]
     Active Substance: CISPLATIN
     Indication: Metastatic choriocarcinoma
     Route: 065
  5. CISPLATIN [Suspect]
     Active Substance: CISPLATIN
     Route: 065
  6. CYCLOPHOSPHAMIDE [Suspect]
     Active Substance: CYCLOPHOSPHAMIDE
     Indication: Metastatic choriocarcinoma
     Route: 042
  7. CYCLOPHOSPHAMIDE [Suspect]
     Active Substance: CYCLOPHOSPHAMIDE
     Route: 065
  8. ETOPOSIDE [Suspect]
     Active Substance: ETOPOSIDE
     Indication: Metastatic choriocarcinoma
     Route: 042
  9. ETOPOSIDE [Suspect]
     Active Substance: ETOPOSIDE
     Route: 065
  10. ETOPOSIDE [Suspect]
     Active Substance: ETOPOSIDE
     Route: 042
  11. ETOPOSIDE [Suspect]
     Active Substance: ETOPOSIDE
     Route: 065
  12. ETOPOSIDE [Suspect]
     Active Substance: ETOPOSIDE
     Route: 065
  13. LEUCOVORIN [Suspect]
     Active Substance: LEUCOVORIN\LEUCOVORIN CALCIUM
     Indication: Metastatic choriocarcinoma
     Route: 065
  14. METHOTREXATE [Suspect]
     Active Substance: METHOTREXATE
     Indication: Metastatic choriocarcinoma
     Route: 042
  15. METHOTREXATE [Suspect]
     Active Substance: METHOTREXATE
     Route: 065
  16. ONCOVIN [Suspect]
     Active Substance: VINCRISTINE SULFATE
     Indication: Metastatic choriocarcinoma
     Route: 040
  17. ONCOVIN [Suspect]
     Active Substance: VINCRISTINE SULFATE
     Route: 065

REACTIONS (4)
  - Neutropenia [Unknown]
  - Febrile neutropenia [Unknown]
  - Menopausal symptoms [Unknown]
  - Amenorrhoea [Unknown]
